FAERS Safety Report 10637844 (Version 2)
Quarter: 2014Q4

REPORT INFORMATION
  Report Type: Spontaneous
  Country: JP (occurrence: JP)
  Receive Date: 20141208
  Receipt Date: 20141226
  Transmission Date: 20150529
  Serious: Yes (Other)
  Sender: FDA-Public Use
  Company Number: JP-MYLANLABS-2014M1013032

PATIENT

DRUGS (4)
  1. TACROLIMUS. [Suspect]
     Active Substance: TACROLIMUS
     Dosage: 0.03 MG/KG/DAY FOR 60 DAYS, SUBSEQUENTLY, ORAL TACROLIMUS WAS ADMINISTERED
     Route: 041
  2. TACROLIMUS. [Suspect]
     Active Substance: TACROLIMUS
     Dosage: RESTARTED AT 0.03 MG/KG/DAY
     Route: 041
  3. PREDNISOLONE. [Concomitant]
     Active Substance: PREDNISOLONE
     Dosage: 1.0 MG/KG/DAY ON DAY 115
     Route: 065
  4. TACROLIMUS. [Suspect]
     Active Substance: TACROLIMUS
     Dosage: SUBSEQUENTLY, ORAL TACROLIMUS WAS ADMINISTERED AT 0.05 MG/KG/DAY FOR 24 DAYS, AND RESTARTED
     Route: 048

REACTIONS (4)
  - Left ventricular hypertrophy [Recovering/Resolving]
  - Weight increased [Recovering/Resolving]
  - Myocardial fibrosis [Recovering/Resolving]
  - Oedema peripheral [Recovering/Resolving]
